FAERS Safety Report 7102752-9 (Version None)
Quarter: 2010Q4

REPORT INFORMATION
  Report Type: 
  Country: None (occurrence: None)
  Receive Date: 20101115
  Receipt Date: 20101104
  Transmission Date: 20110411
  Serious: Yes (Hospitalization, Other)
  Sender: FDA-Public Use
  Company Number: PHHY2010JP42976

PATIENT
  Age: 70 Year
  Sex: Male

DRUGS (9)
  1. TEGRETOL [Suspect]
     Indication: NEURALGIA
     Dosage: 200 MG, DAILY
     Route: 048
     Dates: start: 20100213, end: 20100217
  2. PAXIL [Suspect]
     Indication: NEURALGIA
     Dosage: 10 MG, UNK
     Route: 048
     Dates: start: 20100201, end: 20100217
  3. CERCINE [Suspect]
     Indication: NEURALGIA
     Dosage: 4 MG DAILY
     Route: 048
     Dates: start: 20100213, end: 20100217
  4. DUROTEP JANSSEN [Concomitant]
     Indication: SCIATICA
     Dosage: 2.1 MG, TD
     Dates: start: 20100101
  5. LEPETAN [Concomitant]
     Indication: SCIATICA
     Dosage: 0.8 MG, PR
     Dates: start: 19960101, end: 20100201
  6. TOPSYM [Concomitant]
     Dosage: UNK
     Dates: start: 20100218
  7. ATARAX [Concomitant]
     Dosage: UNK
     Route: 048
     Dates: end: 20100311
  8. ATARAX [Concomitant]
     Dosage: UNK
     Route: 042
     Dates: end: 20100311
  9. ZADITEN [Concomitant]
     Dosage: UNK
     Dates: start: 20100223, end: 20100309

REACTIONS (5)
  - BLOOD GLUCOSE INCREASED [None]
  - DRUG ERUPTION [None]
  - ERYTHEMA [None]
  - PAPULE [None]
  - PRURITUS [None]
